FAERS Safety Report 24919072 (Version 1)
Quarter: 2025Q1

REPORT INFORMATION
  Report Type: Spontaneous
  Country: US (occurrence: US)
  Receive Date: 20250204
  Receipt Date: 20250204
  Transmission Date: 20250409
  Serious: Yes (Other)
  Sender: NOVO NORDISK
  Company Number: US-NOVOPROD-1333806

PATIENT
  Age: 71 Year
  Sex: Male

DRUGS (1)
  1. NOVOLOG [Suspect]
     Active Substance: INSULIN ASPART
     Indication: Product used for unknown indication
     Route: 058

REACTIONS (3)
  - Polypectomy [Unknown]
  - Hernia repair [Unknown]
  - Tumour excision [Unknown]

NARRATIVE: CASE EVENT DATE: 20180101
